FAERS Safety Report 5972683-6 (Version None)
Quarter: 2008Q4

REPORT INFORMATION
  Report Type: 
  Country: None (occurrence: None)
  Receive Date: 20081125
  Receipt Date: 20081110
  Transmission Date: 20090506
  Serious: Yes (Life-Threatening)
  Sender: FDA-Public Use
  Company Number: DSJ-2008-12707

PATIENT
  Age: 52 Year
  Sex: Male

DRUGS (4)
  1. OLMESARTAN MEDOXOMIL [Suspect]
     Indication: HYPERTENSION
     Dosage: 20 MG (20 MG, 1 IN 1 D), PER ORAL
     Route: 048
     Dates: start: 20070915, end: 20081020
  2. NORVASC [Concomitant]
  3. FAMOTIDINE(FAMOTIDINE) (TABLET) (FAMOTIDINE) [Concomitant]
  4. LOXONIN(LOXOPROFEN SODIUM) (TABLET) (LOXOPROFEN SODIUM) [Concomitant]

REACTIONS (4)
  - DEPRESSED LEVEL OF CONSCIOUSNESS [None]
  - DYSARTHRIA [None]
  - FEELING ABNORMAL [None]
  - HYPOGLYCAEMIA [None]
